FAERS Safety Report 25655706 (Version 1)
Quarter: 2025Q3

REPORT INFORMATION
  Report Type: Spontaneous
  Country: US (occurrence: US)
  Receive Date: 20250807
  Receipt Date: 20250807
  Transmission Date: 20251020
  Serious: No
  Sender: PADAGIS
  Company Number: US-PADAGIS-2025PAD00917

PATIENT

DRUGS (3)
  1. BETAMETHASONE DIPROPIONATE USP, 0.05% [Suspect]
     Active Substance: BETAMETHASONE DIPROPIONATE
     Indication: Seborrhoeic dermatitis
     Route: 065
     Dates: start: 20250724
  2. PRAVASTATIN SODIUM [Concomitant]
     Active Substance: PRAVASTATIN SODIUM
     Indication: Product used for unknown indication
     Route: 065
  3. BETAMETHASONE [Concomitant]
     Active Substance: BETAMETHASONE
     Indication: Seborrhoeic dermatitis
     Route: 065

REACTIONS (2)
  - Hair colour changes [Unknown]
  - Product use in unapproved indication [Unknown]
